FAERS Safety Report 23302513 (Version 2)
Quarter: 2023Q4

REPORT INFORMATION
  Report Type: Spontaneous
  Country: ES (occurrence: ES)
  Receive Date: 20231215
  Receipt Date: 20231219
  Transmission Date: 20240110
  Serious: Yes (Life-Threatening, Hospitalization)
  Sender: FDA-Public Use
  Company Number: None

PATIENT
  Age: 82 Year
  Sex: Female

DRUGS (1)
  1. LORAZEPAM [Suspect]
     Active Substance: LORAZEPAM
     Indication: Suicide attempt
     Dosage: 75 MG SINGLE DOSE
     Route: 048
     Dates: start: 20231127, end: 20231127

REACTIONS (4)
  - Overdose [Recovering/Resolving]
  - Suicide attempt [Recovering/Resolving]
  - Aspiration [Recovering/Resolving]
  - Respiratory depression [Recovered/Resolved]

NARRATIVE: CASE EVENT DATE: 20231127
